FAERS Safety Report 6914384-3 (Version None)
Quarter: 2010Q3

REPORT INFORMATION
  Report Type: 
  Country: None (occurrence: None)
  Receive Date: 20100809
  Receipt Date: 20100726
  Transmission Date: 20110219
  Serious: Yes (Other)
  Sender: FDA-Public Use
  Company Number: US-AMGEN-KDL427263

PATIENT
  Sex: Female

DRUGS (2)
  1. ENBREL [Suspect]
  2. ENBREL [Concomitant]
     Indication: RHEUMATOID ARTHRITIS
     Route: 058

REACTIONS (3)
  - BRONCHITIS [None]
  - MALAISE [None]
  - SURGERY [None]
